FAERS Safety Report 12443730 (Version 1)
Quarter: 2016Q2

REPORT INFORMATION
  Report Type: Spontaneous
  Country: CA (occurrence: CA)
  Receive Date: 20160607
  Receipt Date: 20160607
  Transmission Date: 20160815
  Serious: Yes (Death, Other)
  Sender: FDA-Public Use
  Company Number: CA-JNJFOC-20160600551

PATIENT
  Sex: Female

DRUGS (7)
  1. CYCLOPHOSPHAMIDE. [Suspect]
     Active Substance: CYCLOPHOSPHAMIDE
     Indication: BREAST CANCER
     Dosage: OVER 5?60 MIN ON DAY 1 EVERY 3 WEEKS
     Route: 042
  2. CYCLOPHOSPHAMIDE. [Suspect]
     Active Substance: CYCLOPHOSPHAMIDE
     Indication: BREAST CANCER
     Dosage: TAC ARM
     Route: 042
  3. DOXORUBICIN [Suspect]
     Active Substance: DOXORUBICIN
     Indication: BREAST CANCER
     Dosage: OVER 5?60 MIN ON DAY 1 EVERY 3 WEEKS
     Route: 042
  4. DOXORUBICIN [Suspect]
     Active Substance: DOXORUBICIN
     Indication: BREAST CANCER
     Dosage: TAC ARM
     Route: 042
  5. DOCETAXEL. [Suspect]
     Active Substance: DOCETAXEL
     Indication: BREAST CANCER
     Dosage: TAC ARM
     Route: 042
  6. DOCETAXEL. [Suspect]
     Active Substance: DOCETAXEL
     Indication: BREAST CANCER
     Dosage: OVER 1 H EVERY 3 WEEKS
     Route: 042
  7. G-CSF [Concomitant]
     Active Substance: GRANULOCYTE COLONY-STIMULATING FACTOR NOS
     Route: 065

REACTIONS (26)
  - Cardiac failure congestive [Unknown]
  - Febrile neutropenia [Unknown]
  - Anaemia [Unknown]
  - Hypotension [Unknown]
  - Myelodysplastic syndrome [Fatal]
  - Thrombosis [Unknown]
  - Diarrhoea [Unknown]
  - Peripheral sensory neuropathy [Unknown]
  - Neutropenia [Unknown]
  - Embolism [Unknown]
  - Pain [Unknown]
  - Fatigue [Unknown]
  - Myocardial infarction [Unknown]
  - Myalgia [Unknown]
  - Dyspnoea [Unknown]
  - Menstruation irregular [Unknown]
  - Thrombocytopenia [Unknown]
  - Left ventricular dysfunction [Unknown]
  - Palmar-plantar erythrodysaesthesia syndrome [Unknown]
  - Vomiting [Unknown]
  - Neutropenic infection [Unknown]
  - Nausea [Unknown]
  - Stomatitis [Unknown]
  - Leukaemia [Fatal]
  - Infection [Unknown]
  - Fluid retention [Unknown]
